FAERS Safety Report 4736743-X (Version None)
Quarter: 2005Q3

REPORT INFORMATION
  Report Type: 
  Country: None (occurrence: None)
  Receive Date: 20050808
  Receipt Date: 20050728
  Transmission Date: 20060218
  Serious: Yes (Hospitalization, Disabling)
  Sender: FDA-Public Use
  Company Number: CH-BOEHRINGER INGELHEIM PHARMACEUTICALS, INC.-2005-DE-02945SI

PATIENT
  Age: 58 Year
  Sex: Female
  Weight: 57 kg

DRUGS (4)
  1. SPIRIVA [Suspect]
     Indication: CHRONIC OBSTRUCTIVE PULMONARY DISEASE
     Route: 055
     Dates: start: 20040909, end: 20041103
  2. REMERON [Suspect]
     Route: 048
  3. XANAX [Concomitant]
     Route: 048
  4. LEXOTANIL [Concomitant]
     Route: 048

REACTIONS (2)
  - DYSKINESIA [None]
  - TREMOR [None]
